FAERS Safety Report 26039681 (Version 1)
Quarter: 2025Q4

REPORT INFORMATION
  Report Type: Spontaneous
  Country: KR (occurrence: KR)
  Receive Date: 20251113
  Receipt Date: 20251113
  Transmission Date: 20260118
  Serious: Yes (Hospitalization)
  Sender: ROCHE
  Company Number: KR-ROCHE-10000427422

PATIENT
  Age: 61 Year
  Sex: Female

DRUGS (9)
  1. AVASTIN [Suspect]
     Active Substance: BEVACIZUMAB
     Indication: Endometrial neoplasm
     Route: 065
     Dates: start: 20241018
  2. Human Serum Albumin Normal [Concomitant]
  3. Levodroprizine [Concomitant]
  4. ERDOSTEINE [Concomitant]
     Active Substance: ERDOSTEINE
  5. Cefotetan Sodium [Concomitant]
  6. CROMOLYN SODIUM [Concomitant]
     Active Substance: CROMOLYN SODIUM
  7. Dry ferrous sulfate [Concomitant]
  8. NAPROXEN [Concomitant]
     Active Substance: NAPROXEN
  9. Cefaclor Hydrate [Concomitant]

REACTIONS (4)
  - Haemoptysis [Recovered/Resolved]
  - Fatigue [Recovered/Resolved]
  - Decreased appetite [Recovered/Resolved]
  - Compression fracture [Recovered/Resolved]

NARRATIVE: CASE EVENT DATE: 20241107
